FAERS Safety Report 4283615-3 (Version None)
Quarter: 2004Q1

REPORT INFORMATION
  Report Type: 
  Country: None (occurrence: None)
  Receive Date: 20040121
  Receipt Date: 20030915
  Transmission Date: 20041129
  Serious: Yes (Other)
  Sender: FDA-Public Use
  Company Number: A03200302142

PATIENT
  Age: 67 Year
  Sex: Female

DRUGS (9)
  1. PLAVIX [Suspect]
     Indication: TRANSIENT ISCHAEMIC ATTACK
     Dosage: 75 MG QD - ORAL
     Route: 048
     Dates: start: 20030101, end: 20030101
  2. PLAVIX [Suspect]
     Indication: TRANSIENT ISCHAEMIC ATTACK
     Dosage: 37.5 MG QD - ORAL
     Route: 048
     Dates: start: 20030101
  3. ACETYLSALICYLIC ACID SRT [Concomitant]
  4. DICLOFENAC SODIUM [Concomitant]
  5. LOSARTAN + HYDROCHLOROTHIZIDE [Concomitant]
  6. METOPROOL SUCCINATE [Concomitant]
  7. ALENDRONATE SODIUM [Concomitant]
  8. LEVOTHYROXINE SODIUM [Concomitant]
  9. VITAMIN B NOS [Concomitant]

REACTIONS (5)
  - ANAEMIA [None]
  - DIZZINESS [None]
  - GASTROINTESTINAL HAEMORRHAGE [None]
  - MELAENA [None]
  - STOMACH DISCOMFORT [None]
